FAERS Safety Report 13273347 (Version 1)
Quarter: 2017Q1

REPORT INFORMATION
  Report Type: Spontaneous
  Country: US (occurrence: US)
  Receive Date: 20170227
  Receipt Date: 20170227
  Transmission Date: 20170428
  Serious: No
  Sender: FDA-Public Use
  Company Number: US-B.I. PHARMACEUTICALS,INC./RIDGEFIELD-2017-BI-009021

PATIENT
  Age: 71 Year
  Sex: Female

DRUGS (2)
  1. MICARDIS [Suspect]
     Active Substance: TELMISARTAN
     Dosage: 20 MG BID;  FORM STRENGTH: 20 MG; FORMULATION: TABLET ADMINISTRATION CORRECT? YES ACTION(S) TAKEN WI
     Route: 048
     Dates: start: 20170208
  2. MICARDIS [Suspect]
     Active Substance: TELMISARTAN
     Indication: HYPERTENSION
     Dosage: 1 TABLET ONCE DAILY;  FORM STRENGTH: 20 MG; FORMULATION: TABLET ADMINISTRATION CORRECT? YES ACTION(S
     Route: 048
     Dates: start: 201701, end: 20170208

REACTIONS (1)
  - Drug effect incomplete [Unknown]

NARRATIVE: CASE EVENT DATE: 20170208
